FAERS Safety Report 8439615-2 (Version None)
Quarter: 2012Q2

REPORT INFORMATION
  Report Type: 
  Country: None (occurrence: None)
  Receive Date: 20120323
  Receipt Date: 20111215
  Transmission Date: 20120825
  Serious: Yes (Other)
  Sender: FDA-Public Use
  Company Number: 163-21880-11053652

PATIENT
  Age: 60 Year
  Sex: Male

DRUGS (10)
  1. LISINOPRIL [Concomitant]
  2. DEXAMETHASONE [Concomitant]
  3. ASPIRIN TAB [Concomitant]
  4. CALCIUM WITH VITAMIN D (CALCIUM WITH VITAMIN D) [Concomitant]
  5. COUMADIN [Concomitant]
  6. ASCORBIC ACID [Concomitant]
  7. THERAGRAM M (MULTIVITAMINS) [Concomitant]
  8. REVLIMID [Suspect]
     Indication: MULTIPLE MYELOMA
     Dosage: 10 MG, 1 IN 1 D, PO, 25 MG, DAILY X 21 DAYS, PO, 25 MG, DAILY X 21 DAYS, PO
     Route: 048
     Dates: start: 20110816
  9. REVLIMID [Suspect]
     Indication: MULTIPLE MYELOMA
     Dosage: 10 MG, 1 IN 1 D, PO, 25 MG, DAILY X 21 DAYS, PO, 25 MG, DAILY X 21 DAYS, PO
     Route: 048
     Dates: start: 20101101
  10. REVLIMID [Suspect]
     Indication: MULTIPLE MYELOMA
     Dosage: 10 MG, 1 IN 1 D, PO, 25 MG, DAILY X 21 DAYS, PO, 25 MG, DAILY X 21 DAYS, PO
     Route: 048
     Dates: start: 20110201

REACTIONS (3)
  - MUSCLE SPASMS [None]
  - GASTROINTESTINAL HAEMORRHAGE [None]
  - DYSPNOEA [None]
